FAERS Safety Report 9871678 (Version 1)
Quarter: 2014Q1

REPORT INFORMATION
  Report Type: Spontaneous
  Country: US (occurrence: US)
  Receive Date: 20140205
  Receipt Date: 20140205
  Transmission Date: 20141002
  Serious: No
  Sender: FDA-Public Use
  Company Number: US-SA-2013SA133090

PATIENT
  Age: 24 Month
  Sex: 0

DRUGS (1)
  1. ALLEGRA [Suspect]
     Route: 048

REACTIONS (1)
  - Extra dose administered [Unknown]
